FAERS Safety Report 18701330 (Version 1)
Quarter: 2021Q1

REPORT INFORMATION
  Report Type: Spontaneous
  Country: CN (occurrence: CN)
  Receive Date: 20210105
  Receipt Date: 20210105
  Transmission Date: 20210419
  Serious: Yes (Hospitalization, Other)
  Sender: FDA-Public Use
  Company Number: CN-PFIZER INC-2020520550

PATIENT
  Age: 28 Year
  Sex: Female
  Weight: 69 kg

DRUGS (1)
  1. HEMABATE [Suspect]
     Active Substance: CARBOPROST TROMETHAMINE
     Indication: UTERINE HYPOTONUS
     Dosage: 250.000 UG, 1X/DAY
     Route: 030
     Dates: start: 20201208, end: 20201208

REACTIONS (1)
  - Rash erythematous [Recovering/Resolving]

NARRATIVE: CASE EVENT DATE: 20201208
